FAERS Safety Report 5109784-0 (Version None)
Quarter: 2006Q3

REPORT INFORMATION
  Report Type: 
  Country: None (occurrence: None)
  Receive Date: 20060915
  Receipt Date: 20060904
  Transmission Date: 20061208
  Serious: Yes (Other)
  Sender: FDA-Public Use
  Company Number: 2006102293

PATIENT
  Age: 59 Year
  Sex: Male
  Weight: 76.2 kg

DRUGS (1)
  1. SUTENT [Suspect]
     Indication: RENAL CELL CARCINOMA STAGE UNSPECIFIED
     Dosage: 50 MG (50 MG, 1 IN 1 D), ORAL
     Route: 048
     Dates: start: 20060801

REACTIONS (2)
  - HEPATOTOXICITY [None]
  - LIVER FUNCTION TEST ABNORMAL [None]
